FAERS Safety Report 18846312 (Version 1)
Quarter: 2021Q1

REPORT INFORMATION
  Report Type: Report from Study
  Country: US (occurrence: US)
  Receive Date: 20210203
  Receipt Date: 20210203
  Transmission Date: 20210419
  Serious: No
  Sender: FDA-Public Use
  Company Number: US-EXELIXIS-CABO-20029766

PATIENT
  Age: 63 Year
  Sex: Female

DRUGS (3)
  1. CABOMETYX [Suspect]
     Active Substance: CABOZANTINIB S-MALATE
     Dosage: 40 MG, QD
     Route: 048
     Dates: start: 20200516
  2. CABOMETYX [Suspect]
     Active Substance: CABOZANTINIB S-MALATE
     Dosage: 20 MG, QD
     Route: 048
     Dates: start: 202006
  3. CABOMETYX [Suspect]
     Active Substance: CABOZANTINIB S-MALATE
     Indication: RENAL CANCER
     Dosage: 40 MG, QD
     Route: 048
     Dates: start: 20200501, end: 202005

REACTIONS (12)
  - Paraesthesia [Unknown]
  - Blood pressure increased [Recovering/Resolving]
  - Pain in extremity [Unknown]
  - Erythema [Recovering/Resolving]
  - Oropharyngeal pain [Unknown]
  - Dysgeusia [Unknown]
  - Asthenia [Unknown]
  - Haemoptysis [Unknown]
  - Liver injury [Unknown]
  - Mouth ulceration [Unknown]
  - Myalgia [Unknown]
  - Weight decreased [Unknown]

NARRATIVE: CASE EVENT DATE: 202005
